FAERS Safety Report 7562178-0 (Version None)
Quarter: 2011Q2

REPORT INFORMATION
  Report Type: 
  Country: None (occurrence: None)
  Receive Date: 20110620
  Receipt Date: 20110620
  Transmission Date: 20111010
  Serious: Yes (Hospitalization)
  Sender: FDA-Public Use
  Company Number: None

PATIENT
  Age: 83 Year
  Sex: Male
  Weight: 80 kg

DRUGS (2)
  1. ASPIRIN [Suspect]
     Indication: HYPERTENSION
     Dosage: 81 MG EVERY DAY PO
     Route: 048
     Dates: start: 20020610, end: 20110613
  2. CLOPIDOGREL [Suspect]
     Indication: CARDIAC FAILURE CONGESTIVE
     Dosage: 75 MG EVERY DAY PO
     Route: 048
     Dates: start: 20100516, end: 20110613

REACTIONS (4)
  - HAEMOGLOBIN DECREASED [None]
  - GASTRIC HAEMORRHAGE [None]
  - HAEMATOCRIT DECREASED [None]
  - FALL [None]
